FAERS Safety Report 8768865 (Version 1)
Quarter: 2012Q4

REPORT INFORMATION
  Report Type: 
  Country: US (occurrence: US)
  Receive Date: 20120904
  Receipt Date: 20120904
  Transmission Date: 20130627
  Serious: No
  Sender: FDA-Public Use
  Company Number: US-AMGEN-USASP2012048963

PATIENT
  Age: 57 Year
  Sex: Female

DRUGS (3)
  1. ENBREL [Suspect]
     Indication: RHEUMATOID ARTHRITIS
     Dosage: 50 mg, weekly
     Dates: start: 20070123
  2. SULFASALAZINE [Concomitant]
     Dosage: 2 mg, UNK
  3. METHOTREXATE [Concomitant]
     Dosage: 5 mg, UNK
     Dates: start: 2002

REACTIONS (1)
  - Injection site pain [Not Recovered/Not Resolved]
